FAERS Safety Report 6328727-5 (Version None)
Quarter: 2009Q3

REPORT INFORMATION
  Report Type: 
  Country: None (occurrence: None)
  Receive Date: 20090826
  Receipt Date: 20090818
  Transmission Date: 20100115
  Serious: Yes (Other)
  Sender: FDA-Public Use
  Company Number: CN-ASTRAZENECA-2009SE07138

PATIENT
  Age: 28 Year
  Sex: Female
  Weight: 60 kg

DRUGS (3)
  1. PROPOFOL [Suspect]
     Indication: SEDATION
     Dosage: 40 MG EVERY 15 MUNUTES
     Route: 042
  2. LIDOCAINE [Concomitant]
     Route: 008
  3. DICAINE [Concomitant]
     Route: 008

REACTIONS (1)
  - ANAPHYLACTIC REACTION [None]
